FAERS Safety Report 6453745-6 (Version None)
Quarter: 2009Q4

REPORT INFORMATION
  Report Type: 
  Country: None (occurrence: None)
  Receive Date: 20091124
  Receipt Date: 20091016
  Transmission Date: 20100525
  Serious: No
  Sender: FDA-Public Use
  Company Number: US-BRISTOL-MYERS SQUIBB COMPANY-14810493

PATIENT
  Age: 56 Year
  Sex: Male

DRUGS (6)
  1. ONGLYZA [Suspect]
     Indication: TYPE 2 DIABETES MELLITUS
     Route: 048
     Dates: start: 20090917, end: 20090101
  2. METFORMIN HCL [Concomitant]
  3. LEVEMIR [Concomitant]
  4. GLIMEPIRIDE [Concomitant]
  5. ACTOS [Concomitant]
  6. DOXAZOSIN [Concomitant]
     Indication: PROSTATOMEGALY

REACTIONS (1)
  - RASH PRURITIC [None]
